FAERS Safety Report 12545658 (Version 2)
Quarter: 2016Q3

REPORT INFORMATION
  Report Type: Spontaneous
  Country: US (occurrence: US)
  Receive Date: 20160711
  Receipt Date: 20160819
  Transmission Date: 20161109
  Serious: Yes (Death, Hospitalization, Other)
  Sender: FDA-Public Use
  Company Number: US-BRISTOL-MYERS SQUIBB COMPANY-BMS-2016-055922

PATIENT
  Age: 70 Year
  Sex: Female

DRUGS (1)
  1. OPDIVO [Suspect]
     Active Substance: NIVOLUMAB
     Indication: OVARIAN CANCER
     Dosage: 3 MG/KG, UNK
     Route: 042
     Dates: start: 20160420

REACTIONS (3)
  - Thrombocytopenia [Unknown]
  - Product use issue [Unknown]
  - Ovarian cancer [Fatal]

NARRATIVE: CASE EVENT DATE: 20160621
